FAERS Safety Report 16623003 (Version 1)
Quarter: 2019Q3

REPORT INFORMATION
  Report Type: Spontaneous
  Country: FR (occurrence: FR)
  Receive Date: 20190723
  Receipt Date: 20190723
  Transmission Date: 20191004
  Serious: Yes (Hospitalization)
  Sender: FDA-Public Use
  Company Number: FR-TEVA-2019-FR-1032932

PATIENT
  Age: 74 Year
  Sex: Male
  Weight: 112 kg

DRUGS (16)
  1. MEROPENEM ANHYDRE [Suspect]
     Active Substance: MEROPENEM
     Indication: INFECTION
     Dosage: 1 GRAM DAILY;
     Route: 042
     Dates: start: 20181012, end: 20181121
  2. KARDEGIC [Concomitant]
     Active Substance: ASPIRIN DL-LYSINE
  3. ADCIRCA [Concomitant]
     Active Substance: TADALAFIL
  4. ATORVASTATINE [Concomitant]
     Active Substance: ATORVASTATIN
  5. PERFALGAN [Concomitant]
     Active Substance: ACETAMINOPHEN
  6. VELETRI [Concomitant]
     Active Substance: EPOPROSTENOL
     Dates: end: 20181024
  7. PREGABALINE [Concomitant]
     Active Substance: PREGABALIN
  8. ACUPAN [Concomitant]
     Active Substance: NEFOPAM HYDROCHLORIDE
  9. ACTRAPID [Concomitant]
     Active Substance: INSULIN HUMAN
  10. OFLOXACIN. [Suspect]
     Active Substance: OFLOXACIN
     Indication: INFECTION
     Dosage: 200 MILLIGRAM DAILY;
     Route: 048
     Dates: start: 20180927, end: 20181113
  11. CALCIPARINE [Concomitant]
     Active Substance: HEPARIN CALCIUM
  12. VOLIBRIS [Concomitant]
     Active Substance: AMBRISENTAN
  13. FUROSEMIDE. [Concomitant]
     Active Substance: FUROSEMIDE
  14. UPTRAVI [Concomitant]
     Active Substance: SELEXIPAG
     Indication: PULMONARY ARTERIAL HYPERTENSION
     Dosage: 2400 MILLIGRAM DAILY;
     Route: 048
     Dates: start: 20181024
  15. PANTOPRAZOLE [Concomitant]
     Active Substance: PANTOPRAZOLE
  16. LEVOTHYROX 175 MICROGRAMMES, COMPRIM? S?CABLE [Concomitant]
     Active Substance: LEVOTHYROXINE SODIUM

REACTIONS (1)
  - Drug reaction with eosinophilia and systemic symptoms [Recovering/Resolving]

NARRATIVE: CASE EVENT DATE: 201811
